FAERS Safety Report 9183311 (Version 1)
Quarter: 2013Q1

REPORT INFORMATION
  Report Type: Spontaneous
  Country: NL (occurrence: NL)
  Receive Date: 20130322
  Receipt Date: 20130322
  Transmission Date: 20140127
  Serious: Yes (Death)
  Sender: FDA-Public Use
  Company Number: NL-ELI_LILLY_AND_COMPANY-NL201303006322

PATIENT
  Sex: Female

DRUGS (1)
  1. ADCIRCA [Suspect]
     Dosage: 40 MG, QD

REACTIONS (1)
  - Death [Fatal]
